FAERS Safety Report 16720621 (Version 1)
Quarter: 2019Q4

REPORT INFORMATION
  Report Type: Spontaneous
  Country: US (occurrence: US)
  Receive Date: 20190819
  Receipt Date: 20190819
  Transmission Date: 20200122
  Serious: Yes (Hospitalization)
  Sender: FDA-Public Use
  Company Number: None

PATIENT
  Age: 34 Year
  Sex: Male
  Weight: 70.2 kg

DRUGS (1)
  1. VIVITROL [Suspect]
     Active Substance: NALTREXONE
     Indication: DRUG DETOXIFICATION
     Dosage: ?          QUANTITY:1 INJECTION(S);OTHER FREQUENCY:28 DAYS;?
     Route: 030
     Dates: start: 20190813

REACTIONS (9)
  - Oxygen saturation decreased [None]
  - Decreased appetite [None]
  - Palpitations [None]
  - Heart rate decreased [None]
  - Muscle atrophy [None]
  - Nausea [None]
  - Muscle fatigue [None]
  - Restlessness [None]
  - Dyspnoea [None]

NARRATIVE: CASE EVENT DATE: 20190813
